FAERS Safety Report 20696535 (Version 1)
Quarter: 2022Q2

REPORT INFORMATION
  Report Type: Report from Study
  Country: US (occurrence: US)
  Receive Date: 20220411
  Receipt Date: 20220411
  Transmission Date: 20220720
  Serious: Yes (Hospitalization)
  Sender: FDA-Public Use
  Company Number: US-TRAVERE-2021-AER-00008

PATIENT
  Age: 20 Year
  Sex: Male

DRUGS (2)
  1. CHOLIC ACID [Suspect]
     Active Substance: CHOLIC ACID
     Indication: Refsum^s disease
     Route: 048
     Dates: start: 20211006, end: 202110
  2. CHOLIC ACID [Suspect]
     Active Substance: CHOLIC ACID
     Dosage: STARTED BACK AT HALF THE DOSE
     Dates: start: 202110

REACTIONS (3)
  - Pancreatitis [Unknown]
  - Heart rate increased [Unknown]
  - Blood pressure increased [Unknown]
